FAERS Safety Report 24302926 (Version 1)
Quarter: 2024Q3

REPORT INFORMATION
  Report Type: Spontaneous
  Country: US (occurrence: None)
  Receive Date: 20240908
  Receipt Date: 20240908
  Transmission Date: 20241017
  Serious: Yes (Other)
  Sender: Public
  Company Number: None

PATIENT
  Age: 71 Year
  Sex: Female
  Weight: 90 kg

DRUGS (3)
  1. NICOTINE [Suspect]
     Active Substance: NICOTINE
     Indication: Smoking cessation therapy
     Dosage: 14 PATCHES DAILY TRANSDERMAL
     Route: 062
     Dates: start: 20240320, end: 20240908
  2. CALCIUM [Concomitant]
     Active Substance: CALCIUM
  3. VITAMIN D NOS [Concomitant]
     Active Substance: CHOLECALCIFEROL\ERGOCALCIFEROL

REACTIONS (5)
  - Application site irritation [None]
  - Application site erythema [None]
  - Skin disorder [None]
  - Product formulation issue [None]
  - Dermatitis contact [None]

NARRATIVE: CASE EVENT DATE: 20240320
